FAERS Safety Report 8576268-7 (Version None)
Quarter: 2012Q3

REPORT INFORMATION
  Report Type: 
  Country: None (occurrence: None)
  Receive Date: 20120807
  Receipt Date: 20120725
  Transmission Date: 20120928
  Serious: Yes (Hospitalization)
  Sender: FDA-Public Use
  Company Number: TR-ELI_LILLY_AND_COMPANY-TR201206005093

PATIENT
  Sex: Male
  Weight: 74 kg

DRUGS (11)
  1. RADIATION [Suspect]
     Indication: NON-SMALL CELL LUNG CANCER STAGE III
     Dosage: 200 CGY, UNKNOWN
     Route: 065
     Dates: start: 20120521
  2. CISPLATIN [Suspect]
     Indication: NON-SMALL CELL LUNG CANCER STAGE III
     Dosage: 75 MG/M2, Q21
     Route: 042
     Dates: start: 20120521
  3. PEMETREXED [Suspect]
     Indication: NON-SMALL CELL LUNG CANCER STAGE III
     Dosage: 500 MG/M2, Q21
     Route: 042
     Dates: start: 20120521
  4. RADIATION [Suspect]
     Dosage: 40 GY, UNK
  5. NOVALGINE [Concomitant]
     Indication: ODYNOPHAGIA
     Dosage: UNK
     Dates: start: 20120604
  6. DEXAMETHASONE [Concomitant]
     Indication: PROPHYLAXIS
     Dosage: UNK
  7. MIKOSTATIN [Concomitant]
     Indication: MUCOSAL INFLAMMATION
     Dosage: UNK
     Dates: start: 20120604, end: 20120611
  8. VITAMIN B-12 [Concomitant]
     Indication: PROPHYLAXIS
     Dosage: UNK
  9. ANTEPSIN [Concomitant]
     Indication: MUCOSAL INFLAMMATION
     Dosage: UNK
     Dates: start: 20120528
  10. KYTRIL [Concomitant]
     Indication: VOMITING
     Dosage: UNK
     Dates: start: 20120528
  11. FOLIC ACID [Concomitant]
     Indication: PROPHYLAXIS
     Dosage: UNK

REACTIONS (4)
  - LYMPHOPENIA [None]
  - LEUKOPENIA [None]
  - OESOPHAGITIS [None]
  - WEIGHT DECREASED [None]
